FAERS Safety Report 17074114 (Version 1)
Quarter: 2019Q4

REPORT INFORMATION
  Report Type: Spontaneous
  Country: US (occurrence: US)
  Receive Date: 20191126
  Receipt Date: 20191126
  Transmission Date: 20200122
  Serious: Yes (Other)
  Sender: FDA-Public Use
  Company Number: US-ASTELLAS-2019US037111

PATIENT
  Age: 80 Year
  Sex: Female

DRUGS (2)
  1. VITAMINS                           /00067501/ [Concomitant]
     Active Substance: VITAMINS
     Indication: PRODUCT USED FOR UNKNOWN INDICATION
     Dosage: UNK UNK, UNKNOWN FREQ.
     Route: 065
  2. MYRBETRIQ [Suspect]
     Active Substance: MIRABEGRON
     Indication: PRODUCT USED FOR UNKNOWN INDICATION
     Route: 048
     Dates: start: 201908

REACTIONS (6)
  - Oral mucosal erythema [Not Recovered/Not Resolved]
  - Dry mouth [Not Recovered/Not Resolved]
  - Lip ulceration [Not Recovered/Not Resolved]
  - Malaise [Unknown]
  - Stomatitis [Not Recovered/Not Resolved]
  - Gingival erythema [Not Recovered/Not Resolved]
